FAERS Safety Report 9308006 (Version 1)
Quarter: 2013Q2

REPORT INFORMATION
  Report Type: Spontaneous
  Country: US (occurrence: US)
  Receive Date: 20130524
  Receipt Date: 20130524
  Transmission Date: 20140414
  Serious: No
  Sender: FDA-Public Use
  Company Number: US-GLAXOSMITHKLINE-A0628457A

PATIENT
  Age: 51 Year
  Sex: Female

DRUGS (6)
  1. BACTROBAN [Suspect]
     Indication: PRODUCT USED FOR UNKNOWN INDICATION
     Route: 061
     Dates: start: 1986, end: 20061108
  2. BECONASE AQ [Suspect]
     Indication: PRODUCT USED FOR UNKNOWN INDICATION
     Dosage: 2PUFF TWICE PER DAY
     Route: 045
  3. TERAZOL 7 [Concomitant]
  4. TYLENOL 3 [Concomitant]
  5. TOPROL XL [Concomitant]
  6. BENADRYL [Concomitant]

REACTIONS (6)
  - Malaise [Unknown]
  - Throat irritation [Not Recovered/Not Resolved]
  - Throat tightness [Not Recovered/Not Resolved]
  - Nasal discomfort [Not Recovered/Not Resolved]
  - Dysgeusia [Not Recovered/Not Resolved]
  - Product quality issue [Unknown]
